FAERS Safety Report 20802665 (Version 1)
Quarter: 2022Q2

REPORT INFORMATION
  Report Type: Spontaneous
  Country: US (occurrence: None)
  Receive Date: 20220509
  Receipt Date: 20220509
  Transmission Date: 20220720
  Serious: Yes (Hospitalization)
  Sender: FDA-Public Use
  Company Number: None

PATIENT
  Age: 56 Year
  Sex: Male

DRUGS (1)
  1. IBUPROFEN [Suspect]
     Active Substance: IBUPROFEN
     Indication: Pain
     Dates: start: 20220215, end: 20220301

REACTIONS (4)
  - Haematemesis [None]
  - Gastric haemorrhage [None]
  - Product use issue [None]
  - Overdose [None]

NARRATIVE: CASE EVENT DATE: 20220302
